FAERS Safety Report 9342407 (Version 2)
Quarter: 2013Q3

REPORT INFORMATION
  Report Type: Spontaneous
  Country: US (occurrence: US)
  Receive Date: 20130611
  Receipt Date: 20130709
  Transmission Date: 20140515
  Serious: No
  Sender: FDA-Public Use
  Company Number: US-009507513-1305USA016692

PATIENT
  Age: 74 Year
  Sex: Female

DRUGS (6)
  1. CLARITIN [Suspect]
     Indication: RHINORRHOEA
     Dosage: UNK, UNKNOWN
     Route: 048
     Dates: start: 20130401, end: 20130430
  2. CLARITIN [Suspect]
     Indication: COUGH
  3. CLARITIN [Suspect]
     Indication: MEDICAL OBSERVATION
  4. TENORMIN [Concomitant]
     Indication: HYPERTENSION
     Dosage: UNK, UNKNOWN
  5. ZOCOR [Concomitant]
     Indication: BLOOD CHOLESTEROL
     Dosage: UNK, UNKNOWN
  6. SPIRONOLACTONE [Concomitant]
     Indication: BLOOD PRESSURE
     Dosage: UNK, UNKNOWN

REACTIONS (1)
  - Drug ineffective [Unknown]
